FAERS Safety Report 25192596 (Version 1)
Quarter: 2025Q2

REPORT INFORMATION
  Report Type: Other
  Country: CA (occurrence: CA)
  Receive Date: 20250414
  Receipt Date: 20250414
  Transmission Date: 20250716
  Serious: Yes (Other)
  Sender: PFIZER
  Company Number: CA-PFIZER INC-202500076070

PATIENT
  Age: 18 Year

DRUGS (2)
  1. AZITHROMYCIN [Suspect]
     Active Substance: AZITHROMYCIN
     Indication: Gonorrhoea
     Route: 030
  2. CEFIXIME [Suspect]
     Active Substance: CEFIXIME
     Indication: Gonorrhoea
     Route: 030

REACTIONS (4)
  - Oropharyngeal gonococcal infection [Recovered/Resolved]
  - Treatment failure [Recovered/Resolved]
  - Off label use [Unknown]
  - Off label use [Unknown]
